FAERS Safety Report 18327100 (Version 2)
Quarter: 2020Q4

REPORT INFORMATION
  Report Type: Spontaneous
  Country: US (occurrence: US)
  Receive Date: 20200929
  Receipt Date: 20201021
  Transmission Date: 20210113
  Serious: Yes (Hospitalization)
  Sender: FDA-Public Use
  Company Number: US-TEVA-2020-US-1833049

PATIENT
  Age: 20 Year
  Sex: Male

DRUGS (11)
  1. OXCARBAZEPINE. [Interacting]
     Active Substance: OXCARBAZEPINE
     Indication: FOCAL DYSCOGNITIVE SEIZURES
     Dosage: 2400 MILLIGRAM DAILY;
     Route: 065
  2. LEVETIRACETAM. [Interacting]
     Active Substance: LEVETIRACETAM
     Indication: FOCAL DYSCOGNITIVE SEIZURES
     Dosage: 2000 MILLIGRAM DAILY; LEVETIRACETAM EXTENDED RELEASE
     Route: 065
  3. QUETIAPINE. [Interacting]
     Active Substance: QUETIAPINE
     Indication: PSYCHOTIC DISORDER
     Dosage: IMMEDIATE RELEASE
     Route: 065
  4. DIAZEPAM. [Interacting]
     Active Substance: DIAZEPAM
     Indication: ANXIETY
     Dosage: 15 MILLIGRAM DAILY; AT BEDTIME
     Route: 065
  5. ARIPIPRAZOLE. [Suspect]
     Active Substance: ARIPIPRAZOLE
     Indication: PSYCHOTIC DISORDER
     Dosage: 2 MILLIGRAM DAILY;
     Route: 065
  6. DIAZEPAM. [Interacting]
     Active Substance: DIAZEPAM
     Indication: FOCAL DYSCOGNITIVE SEIZURES
  7. QUETIAPINE. [Interacting]
     Active Substance: QUETIAPINE
     Dosage: AT BEDTIME
     Route: 065
  8. LACOSAMIDE. [Interacting]
     Active Substance: LACOSAMIDE
     Indication: FOCAL DYSCOGNITIVE SEIZURES
     Dosage: 400 MILLIGRAM DAILY;
     Route: 065
  9. LORAZEPAM. [Suspect]
     Active Substance: LORAZEPAM
     Indication: ANXIETY
     Dosage: 3 TIMES DAILY
     Route: 065
  10. QUETIAPINE. [Interacting]
     Active Substance: QUETIAPINE
     Dosage: IMMEDIATE RELEASE; AT BEDTIME
     Route: 065
  11. LORAZEPAM. [Suspect]
     Active Substance: LORAZEPAM
     Indication: FOCAL DYSCOGNITIVE SEIZURES

REACTIONS (11)
  - Neutropenia [Recovered/Resolved]
  - Drug interaction [Recovering/Resolving]
  - Psychotic disorder [Recovering/Resolving]
  - Depression [Recovering/Resolving]
  - Weight increased [Unknown]
  - Sedation [Unknown]
  - Affective disorder [Recovering/Resolving]
  - Anxiety [Recovering/Resolving]
  - Drug interaction [Unknown]
  - Leukopenia [Unknown]
  - Agranulocytosis [Unknown]
